FAERS Safety Report 6667993-3 (Version None)
Quarter: 2010Q2

REPORT INFORMATION
  Report Type: 
  Country: None (occurrence: None)
  Receive Date: 20100405
  Receipt Date: 20100323
  Transmission Date: 20101027
  Serious: Yes (Other)
  Sender: FDA-Public Use
  Company Number: GR-ELI_LILLY_AND_COMPANY-GR201003006217

PATIENT
  Age: 57 Year
  Sex: Male
  Weight: 62 kg

DRUGS (5)
  1. FORTEO [Suspect]
     Indication: OSTEOPOROSIS
     Dosage: 20 UG, DAILY (1/D)
     Route: 058
     Dates: start: 20090615
  2. SOLURIC [Concomitant]
     Indication: GOUT
     Dosage: 300 MG, DAILY (1/D)
     Route: 048
  3. LOBIVON [Concomitant]
     Indication: HYPERTENSION
     Dosage: 5 MG, DAILY (1/D)
     Route: 048
  4. XATRAL /00975301/ [Concomitant]
     Indication: BENIGN PROSTATIC HYPERPLASIA
     Dosage: 2.5 MG, DAILY (1/D)
     Route: 048
  5. ENBREL [Concomitant]
     Indication: ANKYLOSING SPONDYLITIS
     Dosage: UNK, DAILY (1/D)
     Route: 058

REACTIONS (1)
  - FREQUENT BOWEL MOVEMENTS [None]
